FAERS Safety Report 4319986-9 (Version None)
Quarter: 2004Q1

REPORT INFORMATION
  Report Type: 
  Country: None (occurrence: None)
  Receive Date: 20040316
  Receipt Date: 20040302
  Transmission Date: 20041129
  Serious: Yes (Disabling, Other)
  Sender: FDA-Public Use
  Company Number: USA040259553

PATIENT
  Age: 40 Year
  Sex: Male
  Weight: 86 kg

DRUGS (14)
  1. XIGRIS [Suspect]
     Indication: SEPSIS
     Dosage: 19.5 G/KG/HR
     Dates: start: 20040207, end: 20040210
  2. MOXIFLOXACIN [Concomitant]
  3. ZOSYN [Concomitant]
  4. FLUCONAZOLE [Concomitant]
  5. CANCIDAS [Concomitant]
  6. PHENYTOIN [Concomitant]
  7. INSULIN [Concomitant]
  8. VANCOMYCIN HYDROCHLORIDE [Concomitant]
  9. PROTONIX [Concomitant]
  10. ATIVAN [Concomitant]
  11. CEFTRIAXONE [Concomitant]
  12. FOSCARNET [Concomitant]
  13. NOREPINEPHRINE [Concomitant]
  14. VASOPRESSIN INJECTION [Concomitant]

REACTIONS (9)
  - ACTIVATED PARTIAL THROMBOPLASTIN TIME PROLONGED [None]
  - AREFLEXIA [None]
  - CEREBRAL HAEMORRHAGE [None]
  - COMA [None]
  - FIBRIN D DIMER INCREASED [None]
  - INTERNATIONAL NORMALISED RATIO DECREASED [None]
  - MENTAL IMPAIRMENT [None]
  - PLATELET COUNT DECREASED [None]
  - PROTHROMBIN TIME PROLONGED [None]
